FAERS Safety Report 9531528 (Version 1)
Quarter: 2013Q2

REPORT INFORMATION
  Report Type: Spontaneous
  Country: US (occurrence: None)
  Receive Date: 20130426
  Receipt Date: 20130426
  Transmission Date: 20140414
  Serious: Yes (Death)
  Sender: FDA-Public Use
  Company Number: 2013-00590

PATIENT
  Age: 22 Year
  Sex: Male

DRUGS (8)
  1. QUETIAPINE [Suspect]
  2. METROPROLOL [Suspect]
  3. ETHANOL [Suspect]
  4. TRAZODONE [Suspect]
  5. FENTANYL [Suspect]
  6. DIAZEPAM [Suspect]
  7. ZOLPIDEM [Suspect]
  8. FLUOXETINE [Suspect]

REACTIONS (1)
  - Drug abuse [None]
